FAERS Safety Report 18670378 (Version 1)
Quarter: 2020Q4

REPORT INFORMATION
  Report Type: Spontaneous
  Country: US (occurrence: US)
  Receive Date: 20201228
  Receipt Date: 20201228
  Transmission Date: 20210114
  Serious: Yes (Other)
  Sender: FDA-Public Use
  Company Number: US-PFIZER INC-2016409926

PATIENT
  Age: 69 Year
  Sex: Male
  Weight: 104.33 kg

DRUGS (2)
  1. CELEBREX [Suspect]
     Active Substance: CELECOXIB
     Indication: ARTHRITIS
     Dosage: 200 MG, 2X/DAY, (AS DIRECTED FOR 90 DAYS)
     Route: 048
  2. CELEBREX [Suspect]
     Active Substance: CELECOXIB
     Indication: OSTEOARTHRITIS
     Dosage: UNK (ONE IN THE MORNING AND ONE IN THE EVENING)

REACTIONS (2)
  - Hypoacusis [Not Recovered/Not Resolved]
  - Drug dependence [Unknown]
